FAERS Safety Report 9797878 (Version 1)
Quarter: 2014Q1

REPORT INFORMATION
  Report Type: Spontaneous
  Country: FR (occurrence: FR)
  Receive Date: 20140106
  Receipt Date: 20140106
  Transmission Date: 20141002
  Serious: Yes (Death, Life-Threatening)
  Sender: FDA-Public Use
  Company Number: PHHY2013FR154340

PATIENT
  Age: 86 Year
  Sex: Female

DRUGS (9)
  1. SANDOSTATIN (OCTREOTIDE ACETATE) [Suspect]
     Dosage: 300 UG, UNK
     Route: 042
     Dates: start: 20131211, end: 20131213
  2. SANDOSTATIN (OCTREOTIDE ACETATE) [Suspect]
     Dosage: 600 UG, DAILY
     Dates: start: 20131212, end: 20131213
  3. REMINYL [Concomitant]
     Indication: DEMENTIA
  4. GAVISCON [Concomitant]
     Dosage: 3 DF, QD
  5. SEROPRAM [Concomitant]
     Dosage: 40 MG, QD
  6. DOMPERIDONE [Concomitant]
     Dosage: 20 MG, UNK
  7. INEXIUM//ESOMEPRAZOLE MAGNESIUM [Concomitant]
     Dosage: 40 MG, BID
  8. FLECAINE [Concomitant]
     Dosage: 50 MG, QD
  9. LOVENOX [Concomitant]
     Dosage: 0.4 ML, QD

REACTIONS (3)
  - General physical health deterioration [Fatal]
  - Vomiting [Fatal]
  - Diarrhoea [Fatal]
